FAERS Safety Report 24184064 (Version 1)
Quarter: 2024Q3

REPORT INFORMATION
  Report Type: Report from Study
  Country: US (occurrence: None)
  Receive Date: 20240807
  Receipt Date: 20240807
  Transmission Date: 20241016
  Serious: Yes (Other)
  Sender: ASTRAZENECA
  Company Number: 2024A173649

PATIENT
  Sex: Male

DRUGS (1)
  1. CALQUENCE [Suspect]
     Active Substance: ACALABRUTINIB
     Indication: Waldenstrom^s macroglobulinaemia
     Route: 048
     Dates: start: 20240125

REACTIONS (7)
  - Fall [Unknown]
  - Limb injury [Unknown]
  - Dyspnoea exertional [Unknown]
  - Prostatic disorder [Unknown]
  - Exercise tolerance decreased [Unknown]
  - Product dose omission issue [Unknown]
  - Off label use [Unknown]
